FAERS Safety Report 17758823 (Version 1)
Quarter: 2020Q2

REPORT INFORMATION
  Report Type: Spontaneous
  Country: FR (occurrence: FR)
  Receive Date: 20200508
  Receipt Date: 20200508
  Transmission Date: 20200714
  Serious: Yes (Death, Hospitalization)
  Sender: FDA-Public Use
  Company Number: FR-SUN PHARMACEUTICAL INDUSTRIES LTD-2020RR-246278

PATIENT
  Age: 29 Year
  Sex: Female

DRUGS (2)
  1. PARACETAMOL [Concomitant]
     Active Substance: ACETAMINOPHEN
     Indication: INFLUENZA LIKE ILLNESS
     Dosage: 3 GRAM, DAILY
     Route: 048
     Dates: start: 20200302
  2. IBUPROFEN. [Suspect]
     Active Substance: IBUPROFEN
     Indication: INFLUENZA LIKE ILLNESS
     Dosage: 1200 MILLIGRAM, DAILY
     Route: 048
     Dates: start: 20200302, end: 20200305

REACTIONS (2)
  - Pneumonia [Fatal]
  - Superinfection bacterial [Fatal]

NARRATIVE: CASE EVENT DATE: 20200306
